FAERS Safety Report 10862125 (Version 1)
Quarter: 2015Q1

REPORT INFORMATION
  Report Type: Spontaneous
  Country: TR (occurrence: TR)
  Receive Date: 20150224
  Receipt Date: 20150224
  Transmission Date: 20150721
  Serious: Yes (Other)
  Sender: FDA-Public Use
  Company Number: ALCN2015TR001345

PATIENT
  Age: 42 Year
  Sex: Male

DRUGS (1)
  1. PROPARACAINE HCL [Suspect]
     Active Substance: PROPARACAINE HYDROCHLORIDE
     Indication: EYE PAIN
     Dosage: UNK
     Route: 047

REACTIONS (7)
  - Corneal oedema [Unknown]
  - Corneal epithelium defect [Unknown]
  - Hypopyon [Unknown]
  - Ocular hyperaemia [Unknown]
  - Keratopathy [Unknown]
  - Conjunctival hyperaemia [Unknown]
  - Vision blurred [Unknown]
